FAERS Safety Report 9883247 (Version 1)
Quarter: 2014Q1

REPORT INFORMATION
  Report Type: Report from Study
  Country: JP (occurrence: JP)
  Receive Date: 20140209
  Receipt Date: 20140209
  Transmission Date: 20141002
  Serious: Yes (Hospitalization)
  Sender: FDA-Public Use
  Company Number: JP-ROCHE-1346382

PATIENT
  Age: 75 Year
  Sex: Female
  Weight: 56 kg

DRUGS (23)
  1. ERLOTINIB [Suspect]
     Indication: LUNG ADENOCARCINOMA METASTATIC
     Route: 048
     Dates: start: 20111111, end: 20120602
  2. ERLOTINIB [Suspect]
     Indication: LUNG ADENOCARCINOMA
     Route: 048
     Dates: start: 20120604, end: 20130630
  3. ERLOTINIB [Suspect]
     Indication: LUNG ADENOCARCINOMA
     Route: 048
     Dates: start: 2013, end: 20140131
  4. BEVACIZUMAB [Suspect]
     Indication: LUNG ADENOCARCINOMA METASTATIC
     Route: 041
     Dates: start: 20111111, end: 20120323
  5. BEVACIZUMAB [Suspect]
     Indication: LUNG ADENOCARCINOMA METASTATIC
     Route: 041
     Dates: start: 20120427, end: 20120518
  6. BEVACIZUMAB [Suspect]
     Indication: LUNG ADENOCARCINOMA METASTATIC
     Route: 041
     Dates: start: 20120622, end: 20120824
  7. VE-NICOTINATE [Concomitant]
     Indication: HYPERLIPIDAEMIA
     Dosage: DOSAGE IS UNCERTAIN.
     Route: 048
  8. METHYCOOL [Concomitant]
     Indication: SPINAL COLUMN STENOSIS
     Dosage: DOSAGE IS UNCERTAIN.
     Route: 048
  9. ASTOMIN [Concomitant]
     Indication: COUGH
     Dosage: DOSAGE IS UNCERTAIN.
     Route: 048
     Dates: end: 20120609
  10. ZETIA [Concomitant]
     Indication: HYPERLIPIDAEMIA
     Dosage: DOSAGE IS UNCERTAIN.
     Route: 048
  11. LIPIDIL [Concomitant]
     Indication: HYPERLIPIDAEMIA
     Dosage: DOSAGE IS UNCERTAIN.
     Route: 048
  12. CONIEL [Concomitant]
     Indication: HYPERLIPIDAEMIA
     Dosage: DOSAGE IS UNCERTAIN.
     Route: 048
     Dates: end: 20120830
  13. ACINON [Concomitant]
     Indication: PROPHYLAXIS
     Dosage: DOSAGE IS UNCERTAIN.
     Route: 048
     Dates: end: 20120720
  14. DEPAS [Concomitant]
     Indication: INSOMNIA
     Dosage: DOSAGE IS UNCERTAIN.
     Route: 048
  15. STOMARCON [Concomitant]
     Indication: PROPHYLAXIS
     Dosage: DOSAGE IS UNCERTAIN.
     Route: 048
     Dates: start: 20120721
  16. INFLUENZA HA VACCINE [Concomitant]
     Indication: PROPHYLAXIS
     Dosage: DOSAGE IS UNCERTAIN.
     Route: 058
     Dates: start: 20121027, end: 20121027
  17. NORVASC [Concomitant]
     Indication: HYPERTENSION
     Dosage: DOSAGE IS UNCERTAIN.
     Route: 048
     Dates: start: 20120901
  18. PL [Concomitant]
     Indication: RHINITIS
     Dosage: SINGLE USE
     Route: 048
  19. LENDORMIN [Concomitant]
     Indication: INSOMNIA
     Dosage: SINGLE USE
     Route: 048
     Dates: start: 20111123
  20. LOXONIN [Concomitant]
     Dosage: DOSAGE IS UNCERTAIN.
     Route: 048
     Dates: start: 20120719, end: 20120719
  21. LOXONIN [Concomitant]
     Dosage: DOSAGE IS UNCERTAIN.
     Route: 048
     Dates: start: 20120905, end: 20120906
  22. CARBOCISTEINE [Concomitant]
     Indication: RHINITIS
     Dosage: DOSAGE IS UNCERTAIN.
     Route: 048
     Dates: start: 20130518, end: 20130524
  23. SANCOBA [Concomitant]
     Indication: ASTHENOPIA
     Route: 047
     Dates: start: 20130629

REACTIONS (1)
  - Lung disorder [Not Recovered/Not Resolved]
